FAERS Safety Report 5454347-0 (Version None)
Quarter: 2007Q3

REPORT INFORMATION
  Report Type: 
  Country: None (occurrence: None)
  Receive Date: 20070917
  Receipt Date: 20070424
  Transmission Date: 20080115
  Serious: Yes (Disabling)
  Sender: FDA-Public Use
  Company Number: US-ASTRAZENECA-2006UW11660

PATIENT
  Age: 46 Year
  Sex: Female
  Weight: 132.3 kg

DRUGS (5)
  1. SEROQUEL [Suspect]
     Indication: BIPOLAR DISORDER
     Route: 048
  2. SEROQUEL [Suspect]
     Indication: DEPRESSION
     Route: 048
  3. SEROQUEL [Suspect]
     Indication: TRICHOTILLOMANIA
     Route: 048
  4. ABILIFY [Suspect]
     Dates: start: 20040101, end: 20060101
  5. ZYPREXA [Suspect]
     Dates: start: 20050101

REACTIONS (1)
  - DIABETES MELLITUS [None]
